FAERS Safety Report 23492358 (Version 1)
Quarter: 2024Q1

REPORT INFORMATION
  Report Type: Spontaneous
  Country: US (occurrence: US)
  Receive Date: 20240207
  Receipt Date: 20240207
  Transmission Date: 20240409
  Serious: No
  Sender: FDA-Public Use
  Company Number: US-009507513-2401USA005492

PATIENT
  Sex: Female
  Weight: 49.887 kg

DRUGS (10)
  1. KEYTRUDA [Suspect]
     Active Substance: PEMBROLIZUMAB
     Indication: Endometrial cancer
     Dosage: 100 MG/4 ML, VIAL
     Dates: start: 2023
  2. LENVATINIB MESYLATE [Suspect]
     Active Substance: LENVATINIB MESYLATE
     Indication: Endometrial cancer
     Dosage: 20 MILLIGRAM, QD
     Route: 048
     Dates: start: 2023
  3. LORATADINE [Concomitant]
     Active Substance: LORATADINE
  4. MODERNA COVID-19 VACCINE [Concomitant]
     Active Substance: ELASOMERAN
  5. MULTIVITAMINS + IRON [Concomitant]
  6. LEVOFLOXACIN [Concomitant]
     Active Substance: LEVOFLOXACIN
     Dosage: FORMULATION:SYRINGE, STRENGTH: 150 MG/ML
  7. LEVOFLOXACIN [Concomitant]
     Active Substance: LEVOFLOXACIN
     Dosage: FORMULATION: SYRINGE, STRENGTH: 100 MG/ML
  8. PEPCID DUO [Concomitant]
     Active Substance: CALCIUM CARBONATE\FAMOTIDINE\MAGNESIUM HYDROXIDE
     Route: 048
  9. DIFLUCAN [Concomitant]
     Active Substance: FLUCONAZOLE
     Route: 048
  10. NYSTATIN [Concomitant]
     Active Substance: NYSTATIN
     Dosage: FORMULATION: 100000/G CREAM

REACTIONS (2)
  - White blood cell count decreased [Unknown]
  - Red blood cell count decreased [Unknown]

NARRATIVE: CASE EVENT DATE: 20230101
